FAERS Safety Report 24711876 (Version 1)
Quarter: 2024Q4

REPORT INFORMATION
  Report Type: Spontaneous
  Country: US (occurrence: None)
  Receive Date: 20241206
  Receipt Date: 20241206
  Transmission Date: 20250115
  Serious: Yes (Other)
  Sender: Public
  Company Number: None

PATIENT
  Sex: 0

DRUGS (1)
  1. QSYMIA [Suspect]
     Active Substance: PHENTERMINE HYDROCHLORIDE\TOPIRAMATE
     Indication: Obesity
     Dosage: FREQUENCY : DAILY;?
     Route: 048
     Dates: start: 20240913, end: 20241206

REACTIONS (1)
  - Pleurisy [None]

NARRATIVE: CASE EVENT DATE: 20241122
